FAERS Safety Report 9857051 (Version 2)
Quarter: 2014Q1

REPORT INFORMATION
  Report Type: Spontaneous
  Country: US (occurrence: US)
  Receive Date: 20140130
  Receipt Date: 20140130
  Transmission Date: 20141002
  Serious: Yes (Hospitalization, Other)
  Sender: FDA-Public Use
  Company Number: US-PFIZER INC-2012185334

PATIENT
  Age: 54 Year
  Sex: Female
  Weight: 79.37 kg

DRUGS (5)
  1. ENBREL [Suspect]
     Indication: RHEUMATOID ARTHRITIS
     Dosage: 50 MG, QWK
     Route: 058
     Dates: end: 201205
  2. CLONAZEPAM [Suspect]
     Indication: RESTLESS LEGS SYNDROME
     Dosage: 1 MG, 1X/DAY
     Route: 048
     Dates: start: 201206
  3. EFFEXOR XR [Suspect]
     Indication: DEPRESSION
     Dosage: 300 MG, CAPSULE QD
     Route: 048
     Dates: end: 201205
  4. PREMPRO [Suspect]
     Indication: MENOPAUSE
     Dosage: UNK, 1X/DAY
     Route: 048
     Dates: end: 201205
  5. PREDNISONE [Concomitant]
     Dosage: UNK

REACTIONS (10)
  - Immune system disorder [Unknown]
  - Osteonecrosis [Recovered/Resolved]
  - Staphylococcal infection [Recovered/Resolved]
  - Gangrene [Not Recovered/Not Resolved]
  - Insomnia [Not Recovered/Not Resolved]
  - Ocular hyperaemia [Not Recovered/Not Resolved]
  - Therapeutic product ineffective [Unknown]
  - Restless legs syndrome [Not Recovered/Not Resolved]
  - Drug ineffective [Unknown]
  - Dark circles under eyes [Not Recovered/Not Resolved]
